FAERS Safety Report 11596198 (Version 1)
Quarter: 2015Q4

REPORT INFORMATION
  Report Type: Spontaneous
  Country: US (occurrence: None)
  Receive Date: 20151005
  Receipt Date: 20151005
  Transmission Date: 20160304
  Serious: No
  Sender: FDA-Public Use
  Company Number: None

PATIENT
  Age: 74 Year
  Sex: Female
  Weight: 48.54 kg

DRUGS (3)
  1. ALL NATURAL SUPPLEMENTS [Concomitant]
  2. PROPANOLOL [Concomitant]
     Active Substance: PROPRANOLOL HYDROCHLORIDE
  3. NULYTELY [Suspect]
     Active Substance: POLYETHYLENE GLYCOL 3350\POTASSIUM CHLORIDE\SODIUM BICARBONATE\SODIUM CHLORIDE
     Indication: COLONOSCOPY
     Dates: start: 20150707, end: 20150707

REACTIONS (9)
  - Blood creatinine abnormal [None]
  - Nail disorder [None]
  - Meniere^s disease [None]
  - Migraine [None]
  - Vomiting [None]
  - Dehydration [None]
  - Gait disturbance [None]
  - Weight decreased [None]
  - Toxicity to various agents [None]

NARRATIVE: CASE EVENT DATE: 20150707
